FAERS Safety Report 8585168-8 (Version None)
Quarter: 2012Q3

REPORT INFORMATION
  Report Type: 
  Country: None (occurrence: None)
  Receive Date: 20120810
  Receipt Date: 20120806
  Transmission Date: 20120928
  Serious: Yes (Death)
  Sender: FDA-Public Use
  Company Number: PHHO2012CH010556

PATIENT
  Sex: Male
  Weight: 75.7 kg

DRUGS (9)
  1. ASPIRIN [Concomitant]
     Indication: CORONARY ARTERY DISEASE
     Dosage: 100 MG, DAY
     Dates: start: 20010222, end: 20120422
  2. ENALAPRIL MALEATE [Suspect]
     Indication: CARDIAC FAILURE
     Dosage: UNK
     Dates: start: 20110316, end: 20120424
  3. ATORVASTATIN CALCIUM [Concomitant]
     Indication: CORONARY ARTERY DISEASE
     Dosage: 40 MG/ DAY
     Dates: start: 20080222, end: 20120422
  4. TORSEMIDE [Concomitant]
     Indication: CARDIAC FAILURE
     Dosage: 30 MG/ DAY
     Dates: start: 20080222
  5. CORDARONE [Concomitant]
     Indication: CARDIAC FAILURE
     Dosage: 100 MG/ DAY
     Dates: start: 20120201, end: 20120422
  6. ALISKIREN [Suspect]
     Dosage: UNK
     Route: 048
     Dates: start: 20110316, end: 20120424
  7. LAXOBERON [Concomitant]
     Indication: CONSTIPATION
     Dosage: 10 GTT/ DAY
     Dates: start: 20111102, end: 20120422
  8. MARCUMAR [Concomitant]
     Indication: ATRIAL FIBRILLATION
     Dosage: 3 MG, (INR)
     Dates: start: 20080222, end: 20120422
  9. ALLOPURINOL [Concomitant]
     Indication: GOUT
     Dosage: 150 MG/ DAY
     Dates: start: 20090804, end: 20120422

REACTIONS (1)
  - DEATH [None]
